FAERS Safety Report 9677584 (Version 1)
Quarter: 2013Q4

REPORT INFORMATION
  Report Type: Spontaneous
  Country: US (occurrence: US)
  Receive Date: 20131108
  Receipt Date: 20131108
  Transmission Date: 20140711
  Serious: No
  Sender: FDA-Public Use
  Company Number: US-PFIZER INC-2013318235

PATIENT
  Age: 57 Year
  Sex: Female

DRUGS (5)
  1. XELJANZ [Suspect]
     Dosage: 5 MG, 2X/DAY
     Route: 048
  2. ATENOLOL [Concomitant]
     Dosage: 25 MG
  3. LISINOPRIL [Concomitant]
     Dosage: 2.5 MG
  4. PREDNISONE [Concomitant]
     Dosage: 1 MG
  5. SYNTHROID [Concomitant]
     Dosage: 25 UG

REACTIONS (1)
  - Headache [Unknown]
